FAERS Safety Report 7406177-8 (Version None)
Quarter: 2011Q2

REPORT INFORMATION
  Report Type: 
  Country: None (occurrence: None)
  Receive Date: 20110411
  Receipt Date: 20110315
  Transmission Date: 20111010
  Serious: Yes (Other)
  Sender: FDA-Public Use
  Company Number: US-BAYER-201040911NA

PATIENT
  Sex: Female
  Weight: 54.422 kg

DRUGS (4)
  1. YAZ [Suspect]
     Indication: ORAL CONTRACEPTION
     Route: 048
     Dates: start: 20071001, end: 20090901
  2. ADVIL LIQUI-GELS [Concomitant]
     Dosage: UNK
     Dates: start: 20000101
  3. LEVOTHYROXINE [Concomitant]
     Dosage: UNK
     Dates: start: 20070301
  4. MOTRIN [Concomitant]
     Dosage: UNK
     Dates: start: 20000101

REACTIONS (4)
  - ABDOMINAL PAIN UPPER [None]
  - CHOLECYSTITIS CHRONIC [None]
  - GALLBLADDER DISORDER [None]
  - BILIARY DYSKINESIA [None]
